FAERS Safety Report 9818241 (Version 2)
Quarter: 2014Q1

REPORT INFORMATION
  Report Type: Spontaneous
  Country: US (occurrence: US)
  Receive Date: 20140115
  Receipt Date: 20140115
  Transmission Date: 20141002
  Serious: Yes (Other)
  Sender: FDA-Public Use
  Company Number: PHEH2013US018775

PATIENT
  Age: 84 Year
  Sex: Female

DRUGS (9)
  1. ZOMETA [Suspect]
     Indication: BREAST CANCER
     Dosage: 4 MG, ONCE IN 6 MONTHS
     Route: 042
     Dates: start: 20130828, end: 20130828
  2. FEMARA [Concomitant]
     Indication: BREAST CANCER
     Dosage: 2.5 MG, QD
     Route: 048
  3. HYDROCHLOROTHIAZIDE [Concomitant]
     Dosage: 25 MG, QD
     Route: 048
  4. ADVACAL//CALCIUM [Concomitant]
     Dosage: 500 MG, TID
     Route: 048
  5. LIPITOR [Concomitant]
     Dosage: 10 MG, QD
     Route: 048
  6. XANAX [Concomitant]
     Dosage: 0.25 MG, QD
     Route: 048
  7. ASPIRIN [Concomitant]
     Dosage: 325 MG, 1 PER DAY
     Route: 048
  8. CYSTEX [Concomitant]
     Dosage: UNK UKN, UNK
     Route: 048
  9. ICAPS [Concomitant]
     Dosage: UNIT-5 MG-200MG-75 UNIT, 1 PER DAY

REACTIONS (14)
  - Neuropathy peripheral [Not Recovered/Not Resolved]
  - Arthralgia [Not Recovered/Not Resolved]
  - Limb discomfort [Not Recovered/Not Resolved]
  - Muscle tightness [Not Recovered/Not Resolved]
  - Erythema [Unknown]
  - Pain in extremity [Not Recovered/Not Resolved]
  - Pain [Not Recovered/Not Resolved]
  - Local swelling [Not Recovered/Not Resolved]
  - Joint swelling [Not Recovered/Not Resolved]
  - Swelling [Not Recovered/Not Resolved]
  - Influenza like illness [Unknown]
  - Hypoaesthesia [Not Recovered/Not Resolved]
  - Paraesthesia [Not Recovered/Not Resolved]
  - Asthenia [Unknown]
